FAERS Safety Report 23377967 (Version 6)
Quarter: 2025Q3

REPORT INFORMATION
  Report Type: Spontaneous
  Country: US (occurrence: US)
  Receive Date: 20240108
  Receipt Date: 20250925
  Transmission Date: 20251020
  Serious: No
  Sender: BIOGEN
  Company Number: US-BIOGEN-2024BI01243932

PATIENT
  Age: 43 Year
  Sex: Female

DRUGS (1)
  1. TYSABRI [Suspect]
     Active Substance: NATALIZUMAB
     Indication: Multiple sclerosis
     Route: 050
     Dates: start: 20220310

REACTIONS (2)
  - Prescribed underdose [Not Recovered/Not Resolved]
  - Infusion site bruising [Not Recovered/Not Resolved]

NARRATIVE: CASE EVENT DATE: 20220310
